FAERS Safety Report 4289059-2 (Version None)
Quarter: 2004Q1

REPORT INFORMATION
  Report Type: 
  Country: None (occurrence: None)
  Receive Date: 20040209
  Receipt Date: 20040203
  Transmission Date: 20041129
  Serious: Yes (Death)
  Sender: FDA-Public Use
  Company Number: WAES 0402USA00262

PATIENT
  Age: 50 Year

DRUGS (1)
  1. VIOXX [Suspect]
     Route: 048

REACTIONS (1)
  - HAEMORRHAGE [None]
